FAERS Safety Report 20005650 (Version 1)
Quarter: 2021Q4

REPORT INFORMATION
  Report Type: Spontaneous
  Country: US (occurrence: US)
  Receive Date: 20211028
  Receipt Date: 20211028
  Transmission Date: 20220303
  Serious: Yes (Hospitalization)
  Sender: FDA-Public Use
  Company Number: None

PATIENT
  Age: 69 Year
  Sex: Female
  Weight: 94.7 kg

DRUGS (14)
  1. TAXOL [Suspect]
     Active Substance: PACLITAXEL
     Dates: end: 20210607
  2. PERTUZUMAB [Suspect]
     Active Substance: PERTUZUMAB
     Dates: end: 20210923
  3. HERCEPTIN [Suspect]
     Active Substance: TRASTUZUMAB
     Dates: end: 20210923
  4. ACETAMINOPHEN [Concomitant]
     Active Substance: ACETAMINOPHEN
  5. CHOLECALCIFEROL [Concomitant]
     Active Substance: CHOLECALCIFEROL
  6. DENOSUMAB [Concomitant]
     Active Substance: DENOSUMAB
  7. HYDROCORTISONE [Concomitant]
     Active Substance: HYDROCORTISONE
  8. IBUPROFEN [Concomitant]
     Active Substance: IBUPROFEN
  9. LOPERAMIDE [Concomitant]
     Active Substance: LOPERAMIDE
  10. METHIMAZOLE [Concomitant]
     Active Substance: METHIMAZOLE
  11. PROCHLORPERAZINE [Concomitant]
     Active Substance: PROCHLORPERAZINE
  12. PSYLLIUM HUSK [Concomitant]
     Active Substance: PSYLLIUM HUSK
  13. SODIUM CHLORIDE [Concomitant]
     Active Substance: SODIUM CHLORIDE
  14. calcium carbonate- vitamin D3 [Concomitant]

REACTIONS (2)
  - Diverticulitis [None]
  - Therapy interrupted [None]

NARRATIVE: CASE EVENT DATE: 20211014
